FAERS Safety Report 22651327 (Version 1)
Quarter: 2023Q2

REPORT INFORMATION
  Report Type: Report from Study
  Country: IT (occurrence: IT)
  Receive Date: 20230628
  Receipt Date: 20230628
  Transmission Date: 20230722
  Serious: Yes (Other)
  Sender: FDA-Public Use
  Company Number: None

PATIENT
  Age: 34 Year
  Sex: Female

DRUGS (5)
  1. MEDROL [Suspect]
     Active Substance: METHYLPREDNISOLONE
     Dosage: 31 MG
     Dates: end: 20230410
  2. ISOTRETINOIN [Concomitant]
     Active Substance: ISOTRETINOIN
  3. POTASSIUM CHLORIDE [Concomitant]
     Active Substance: POTASSIUM CHLORIDE
  4. MESALAMINE [Concomitant]
     Active Substance: MESALAMINE
  5. CHOLECALCIFEROL [Concomitant]
     Active Substance: CHOLECALCIFEROL

REACTIONS (4)
  - Dermo-hypodermitis [Recovering/Resolving]
  - Abdominal distension [Recovering/Resolving]
  - Erythema [Recovering/Resolving]
  - Wrong strength [Unknown]

NARRATIVE: CASE EVENT DATE: 20230409
